FAERS Safety Report 17160779 (Version 2)
Quarter: 2020Q1

REPORT INFORMATION
  Report Type: Spontaneous
  Country: BR (occurrence: BR)
  Receive Date: 20191216
  Receipt Date: 20200323
  Transmission Date: 20200409
  Serious: Yes (Other)
  Sender: FDA-Public Use
  Company Number: BR-ALLERGAN-1950395US

PATIENT
  Sex: Male

DRUGS (4)
  1. ROSUVASTATIN. [Concomitant]
     Active Substance: ROSUVASTATIN
     Dosage: 5 MG, UNK
  2. RESTASIS [Suspect]
     Active Substance: CYCLOSPORINE
     Indication: DRY EYE
     Dosage: 2 GTT, QHS
     Route: 047
     Dates: start: 20190331, end: 2019
  3. HYABAK [Concomitant]
     Active Substance: HYALURONATE SODIUM
  4. LIPOSIC [Concomitant]
     Active Substance: CARBOMER

REACTIONS (1)
  - Basal cell carcinoma [Recovered/Resolved]
